FAERS Safety Report 11822958 (Version 1)
Quarter: 2015Q4

REPORT INFORMATION
  Report Type: Spontaneous
  Country: US (occurrence: US)
  Receive Date: 20151210
  Receipt Date: 20151210
  Transmission Date: 20160305
  Serious: Yes (Other)
  Sender: FDA-Public Use
  Company Number: PHHY2015US160040

PATIENT
  Age: 71 Year
  Sex: Male

DRUGS (1)
  1. PAZOPANIB [Suspect]
     Active Substance: PAZOPANIB
     Indication: CLEAR CELL RENAL CELL CARCINOMA
     Route: 065

REACTIONS (4)
  - Headache [Recovering/Resolving]
  - Polycythaemia [Recovering/Resolving]
  - Hypertension [Recovering/Resolving]
  - Therapeutic response decreased [Unknown]
